FAERS Safety Report 8998519 (Version 2)
Quarter: 2013Q1

REPORT INFORMATION
  Report Type: Spontaneous
  Country: US (occurrence: US)
  Receive Date: 20130103
  Receipt Date: 20130215
  Transmission Date: 20140127
  Serious: No
  Sender: FDA-Public Use
  Company Number: US-PFIZER INC-2013000420

PATIENT
  Age: 54 Year
  Sex: Female
  Weight: 67.57 kg

DRUGS (2)
  1. ADVIL [Suspect]
     Indication: HEADACHE
     Dosage: UNK, 1X/DAY
     Route: 048
     Dates: start: 201212, end: 201212
  2. NORCO [Concomitant]
     Dosage: UNK

REACTIONS (3)
  - Nausea [Recovered/Resolved]
  - Headache [Recovered/Resolved]
  - Malaise [Recovered/Resolved]
